FAERS Safety Report 7919966-8 (Version None)
Quarter: 2011Q4

REPORT INFORMATION
  Report Type: 
  Country: None (occurrence: None)
  Receive Date: 20111117
  Receipt Date: 20111110
  Transmission Date: 20120403
  Serious: No
  Sender: FDA-Public Use
  Company Number: AU-B.I. PHARMACEUTICALS,INC./RIDGEFIELD-2011-AU-01500AU

PATIENT
  Sex: Male
  Weight: 80 kg

DRUGS (3)
  1. MINAX [Concomitant]
     Dosage: 50 MG
     Dates: start: 20040101
  2. LIPITOR [Concomitant]
     Dosage: 40 MG
     Dates: start: 20040101
  3. PRADAXA [Suspect]
     Indication: ATRIAL FIBRILLATION
     Dosage: 220 MG
     Dates: start: 20110819, end: 20110908

REACTIONS (6)
  - DIZZINESS [None]
  - FATIGUE [None]
  - CHEST PAIN [None]
  - IRRITABILITY [None]
  - LETHARGY [None]
  - PALPITATIONS [None]
